FAERS Safety Report 8285840-3 (Version None)
Quarter: 2012Q2

REPORT INFORMATION
  Report Type: 
  Country: None (occurrence: None)
  Receive Date: 20120413
  Receipt Date: 20120328
  Transmission Date: 20120825
  Serious: Yes (Hospitalization)
  Sender: FDA-Public Use
  Company Number: US-ROCHE-1054899

PATIENT
  Sex: Male
  Weight: 79.7 kg

DRUGS (10)
  1. FLUCONAZOLE [Concomitant]
  2. LORAZEPAM [Concomitant]
  3. IFOSFAMIDE [Suspect]
     Indication: NON-HODGKIN'S LYMPHOMA
  4. CARBOPLATIN [Suspect]
     Indication: NON-HODGKIN'S LYMPHOMA
  5. MARIJUANA [Concomitant]
  6. ETOPOSIDE [Suspect]
     Indication: NON-HODGKIN'S LYMPHOMA
  7. AMOXICILLIN [Concomitant]
  8. BORTEZOMIB [Suspect]
     Indication: NON-HODGKIN'S LYMPHOMA
     Route: 042
  9. MABTHERA [Suspect]
     Indication: NON-HODGKIN'S LYMPHOMA
  10. BACTRIM [Concomitant]

REACTIONS (6)
  - HAEMATEMESIS [None]
  - NAUSEA [None]
  - HYPERTENSION [None]
  - PRESYNCOPE [None]
  - THROMBOCYTOPENIA [None]
  - ANAEMIA [None]
